FAERS Safety Report 11725952 (Version 1)
Quarter: 2015Q4

REPORT INFORMATION
  Report Type: Report from Study
  Country: PL (occurrence: PL)
  Receive Date: 20151112
  Receipt Date: 20151112
  Transmission Date: 20160304
  Serious: Yes (Death)
  Sender: FDA-Public Use
  Company Number: PL-ROCHE-1656687

PATIENT

DRUGS (2)
  1. CAPECITABINE. [Suspect]
     Active Substance: CAPECITABINE
     Indication: COLORECTAL CANCER METASTATIC
     Dosage: ON DAY 1-14 FOLLOWED BY 7 DAY REST, TREATMENT FREE INTERVAL
     Route: 048
  2. MITOMYCIN C [Suspect]
     Active Substance: MITOMYCIN
     Indication: COLORECTAL CANCER METASTATIC
     Dosage: ON DAY 1
     Route: 042

REACTIONS (1)
  - Myocardial infarction [Fatal]
